FAERS Safety Report 5221570-X (Version None)
Quarter: 2007Q1

REPORT INFORMATION
  Report Type: 
  Country: None (occurrence: None)
  Receive Date: 20070127
  Receipt Date: 20070119
  Transmission Date: 20070707
  Serious: Yes (Hospitalization)
  Sender: FDA-Public Use
  Company Number: TR-ABBOTT-07P-161-0356463-00

PATIENT
  Age: 80 Year
  Sex: Male

DRUGS (7)
  1. KLACID TABLETS [Suspect]
     Indication: BRONCHITIS
     Route: 048
     Dates: start: 20061019, end: 20061022
  2. ASPIRIN [Concomitant]
     Indication: ANTICOAGULANT THERAPY
     Route: 048
  3. ISOSORBIDE MONONITRATE [Concomitant]
     Indication: HYPERTENSION
     Route: 048
  4. LANSOPRAZOLE [Concomitant]
     Indication: GASTRITIS
     Route: 048
  5. NEUROBION FOR INJECTION [Concomitant]
     Indication: VITAMIN SUPPLEMENTATION
     Route: 048
  6. FOLIC ACID [Concomitant]
     Indication: VITAMIN SUPPLEMENTATION
     Route: 048
  7. KETOSTERIL [Concomitant]
     Indication: VITAMIN SUPPLEMENTATION
     Route: 048

REACTIONS (2)
  - AGITATION [None]
  - DELIRIUM [None]
